FAERS Safety Report 8116235-0 (Version None)
Quarter: 2012Q1

REPORT INFORMATION
  Report Type: 
  Country: None (occurrence: None)
  Receive Date: 20120206
  Receipt Date: 20120130
  Transmission Date: 20120608
  Serious: Yes (Hospitalization)
  Sender: FDA-Public Use
  Company Number: DE-ABBOTT-12P-062-0899679-00

PATIENT
  Age: 68 Year
  Sex: Female

DRUGS (1)
  1. HUMIRA [Suspect]
     Indication: RHEUMATOID ARTHRITIS
     Route: 058
     Dates: start: 20050101

REACTIONS (5)
  - CORONARY ARTERY DISEASE [None]
  - TACHYARRHYTHMIA [None]
  - DYSPNOEA EXERTIONAL [None]
  - FATIGUE [None]
  - ATRIAL FIBRILLATION [None]
